FAERS Safety Report 4724992-6 (Version None)
Quarter: 2005Q3

REPORT INFORMATION
  Report Type: 
  Country: None (occurrence: None)
  Receive Date: 20050722
  Receipt Date: 20050722
  Transmission Date: 20060218
  Serious: Yes (Hospitalization)
  Sender: FDA-Public Use
  Company Number: None

PATIENT
  Age: 35 Year
  Sex: Female

DRUGS (1)
  1. ACETAMINOPHEN [Suspect]

REACTIONS (3)
  - OEDEMA PERIPHERAL [None]
  - RESPIRATORY RATE INCREASED [None]
  - URTICARIA [None]
